FAERS Safety Report 24592041 (Version 2)
Quarter: 2025Q4

REPORT INFORMATION
  Report Type: Report from Study
  Country: JP (occurrence: JP)
  Receive Date: 20241108
  Receipt Date: 20251104
  Transmission Date: 20260118
  Serious: Yes (Hospitalization)
  Sender: GILEAD
  Company Number: JP-GILEAD-2020-0504969

PATIENT
  Age: 25 Year
  Sex: Male

DRUGS (4)
  1. BICTEGRAVIR\EMTRICITABINE\TENOFOVIR ALAFENAMIDE [Suspect]
     Active Substance: BICTEGRAVIR\EMTRICITABINE\TENOFOVIR ALAFENAMIDE
     Indication: HIV infection
     Dosage: 1 DOSAGE FORM, QD
     Route: 048
     Dates: start: 20191004
  2. BILASTINE [Concomitant]
     Active Substance: BILASTINE
     Dosage: UNK
     Dates: start: 20220225, end: 20220524
  3. PATANOL [Concomitant]
     Active Substance: OLOPATADINE HYDROCHLORIDE
     Dosage: UNK
     Dates: start: 20220225, end: 20220524
  4. FLUTICASONE FUROATE [Concomitant]
     Active Substance: FLUTICASONE FUROATE
     Dosage: UNK
     Dates: start: 20220225, end: 20220524

REACTIONS (8)
  - Appendicitis [Recovering/Resolving]
  - Tongue neoplasm [Recovering/Resolving]
  - Jaw disorder [Not Recovered/Not Resolved]
  - Dry skin [Recovered/Resolved]
  - Acne [Not Recovered/Not Resolved]
  - Monkeypox [Recovered/Resolved]
  - Syphilis [Recovering/Resolving]
  - Syphilis [Recovering/Resolving]

NARRATIVE: CASE EVENT DATE: 20191011
